FAERS Safety Report 10071537 (Version 2)
Quarter: 2014Q2

REPORT INFORMATION
  Report Type: Spontaneous
  Country: US (occurrence: US)
  Receive Date: 20140410
  Receipt Date: 20140410
  Transmission Date: 20141212
  Serious: No
  Sender: FDA-Public Use
  Company Number: US-BRISTOL-MYERS SQUIBB COMPANY-19925270

PATIENT
  Age: 74 Year
  Sex: Female
  Weight: 52.15 kg

DRUGS (15)
  1. NULOJIX [Suspect]
     Indication: RENAL TRANSPLANT
     Dosage: INJ?LAST DOSE:11DEC2013
     Route: 042
     Dates: start: 20130920
  2. NYSTATIN [Suspect]
     Indication: ORAL CANDIDIASIS
     Dosage: 5 ML 4 TIMES A DAY.?BOTH SOLUTION AND SWISH
     Route: 048
     Dates: start: 20131211, end: 20131212
  3. DIFLUCAN [Suspect]
     Indication: VULVOVAGINAL MYCOTIC INFECTION
     Route: 048
     Dates: start: 20131211
  4. NEORAL [Concomitant]
  5. CELLCEPT [Concomitant]
     Dosage: 1DF=500 MG IN AM, 250 IN EVENING
  6. CATAPRES [Concomitant]
  7. NEXIUM [Concomitant]
  8. ROCALTROL [Concomitant]
  9. CITRACAL [Concomitant]
  10. EVISTA [Concomitant]
  11. VITAMIN D [Concomitant]
     Dosage: 1DF=500 UNITS
  12. IMDUR [Concomitant]
  13. NEURONTIN [Concomitant]
  14. FERROUS SULFATE [Concomitant]
  15. MIRAPEX [Concomitant]

REACTIONS (5)
  - Fungal infection [Unknown]
  - Stomatitis [Unknown]
  - Rash [Recovered/Resolved]
  - Pruritus [Recovered/Resolved]
  - Oral candidiasis [Unknown]
